FAERS Safety Report 16679951 (Version 2)
Quarter: 2019Q3

REPORT INFORMATION
  Report Type: Spontaneous
  Country: US (occurrence: US)
  Receive Date: 20190807
  Receipt Date: 20190816
  Transmission Date: 20191004
  Serious: Yes (Other)
  Sender: FDA-Public Use
  Company Number: US-PFIZER INC-2019329274

PATIENT
  Age: 63 Year
  Sex: Male

DRUGS (13)
  1. CEFAZOLIN SODIUM. [Concomitant]
     Active Substance: CEFAZOLIN SODIUM
     Indication: BILE DUCT OBSTRUCTION
     Dosage: UNK (3 MONTHS AFTER POSTOPERATIVE) (ALONG WITH GENTAMICIN SULFATE, CLINDAMYCIN PHOSPHATE, CEFTIZOXI)
  2. CEFTIZOXIME SODIUM [Concomitant]
     Active Substance: CEFTIZOXIME SODIUM
     Indication: ABDOMINAL ABSCESS
     Dosage: UNK (1 MONTHS AFTER POSTOPERATIVE) (ALONG WITH GENTAMICIN SULFATE, CLINDAMYCIN PHOSPHATE, CEFAZOLIN)
  3. CEFTIZOXIME SODIUM [Concomitant]
     Active Substance: CEFTIZOXIME SODIUM
     Indication: BACTERIAL SEPSIS
     Dosage: UNK (3 MONTHS AFTER POSTOPERATIVE) (ALONG WITH GENTAMICIN SULFATE, CLINDAMYCIN PHOSPHATE, CEFAZOLIN)
  4. CEFAZOLIN SODIUM. [Concomitant]
     Active Substance: CEFAZOLIN SODIUM
     Dosage: UNK (6 MONTHS AFTER POSTOPERATIVE) (ALONG WITH TRIMETHOPRIM AND SULFAMETHOXAZOLE)
  5. GENTAMICIN SULFATE. [Concomitant]
     Active Substance: GENTAMICIN SULFATE
     Indication: BACTERIAL SEPSIS
     Dosage: UNK (2 MONTHS AFTER POSTOPERATIVE) (ALONG WITH CLINDAMYCIN PHOSPHATE, CEFAZOLIN SODIUM)
  6. CLINDAMYCIN PHOSPHATE. [Concomitant]
     Active Substance: CLINDAMYCIN PHOSPHATE
     Dosage: UNK (3 MONTHS AFTER POSTOPERATIVE) (ALONG WITH GENTAMICIN SULFATE, CEFAZOLIN SODIUM, CEFTIZOXIM)
  7. MAGNESIUM SULFATE. [Suspect]
     Active Substance: MAGNESIUM SULFATE
     Indication: HYPOMAGNESAEMIA
     Dosage: 28 MEQ, DAILY (8 ML/VIA MICROINFUSION PUMP/10-HOUR NIGHTLY)
     Route: 058
  8. STERILE WATER [Concomitant]
     Active Substance: WATER
     Dosage: 7 ML, DAILY (VIA MICROINFUSION PUMP/10-HOUR NIGHTLY)
     Route: 058
  9. TRIMETHOPRIM SULFAMETHOXAZOLE [Concomitant]
     Active Substance: SULFAMETHOXAZOLE\TRIMETHOPRIM
     Indication: BILE DUCT OBSTRUCTION
     Dosage: UNK (6 MONTHS AFTER POSTOPERATIVE) (ALONG WITH CEFAZOLIN SODIUM )
  10. CEPHALOTHIN [Concomitant]
     Active Substance: CEPHALOTHIN
     Indication: ABDOMINAL ABSCESS
     Dosage: UNK (1 MONTH AFTER POSTOPERATIVE) (ALONG WITH CEFTIZOXIME SODIUM)
  11. GENTAMICIN SULFATE. [Concomitant]
     Active Substance: GENTAMICIN SULFATE
     Dosage: UNK (3 MONTHS AFTER POSTOPERATIVE) (ALONG WITH CLINDAMYCIN PHOSPHATE, CEFAZOLIN SODIUM, CEFTIZOXIM)
  12. CEFAZOLIN SODIUM. [Concomitant]
     Active Substance: CEFAZOLIN SODIUM
     Indication: BACTERIAL SEPSIS
     Dosage: UNK (2 MONTHS AFTER POSTOPERATIVE) (ALONG WITH GENTAMICIN SULFATE, CLINDAMYCIN PHOSPHATE)
  13. CLINDAMYCIN PHOSPHATE. [Concomitant]
     Active Substance: CLINDAMYCIN PHOSPHATE
     Indication: BACTERIAL SEPSIS
     Dosage: UNK (2 MONTHS AFTER POSTOPERATIVE) (ALONG WITH GENTAMICIN SULFATE, CEFAZOLIN SODIUM)

REACTIONS (3)
  - Subcutaneous abscess [Recovered/Resolved]
  - Product use issue [Unknown]
  - Off label use [Unknown]
